FAERS Safety Report 17656266 (Version 1)
Quarter: 2020Q2

REPORT INFORMATION
  Report Type: Spontaneous
  Country: US (occurrence: US)
  Receive Date: 20200410
  Receipt Date: 20200410
  Transmission Date: 20200713
  Serious: No
  Sender: FDA-Public Use
  Company Number: US-PERRIGO-19US016366

PATIENT
  Age: 67 Year
  Sex: Female
  Weight: 140.14 kg

DRUGS (1)
  1. ACETAMINOPHEN. [Suspect]
     Active Substance: ACETAMINOPHEN
     Indication: ARTHRALGIA
     Dosage: 650 MG, TID
     Route: 048
     Dates: start: 20191204, end: 20191227

REACTIONS (3)
  - Underdose [Recovered/Resolved]
  - Incorrect product administration duration [Recovered/Resolved]
  - Hypoaesthesia oral [Recovered/Resolved]

NARRATIVE: CASE EVENT DATE: 20191204
